FAERS Safety Report 6811884-1 (Version None)
Quarter: 2010Q3

REPORT INFORMATION
  Report Type: 
  Country: None (occurrence: None)
  Receive Date: 20100701
  Receipt Date: 20100628
  Transmission Date: 20110219
  Serious: Yes (Death, Hospitalization, Other)
  Sender: FDA-Public Use
  Company Number: US-ASTRAZENECA-2007UW14022

PATIENT
  Age: 14142 Day
  Sex: Male
  Weight: 102 kg

DRUGS (24)
  1. SEROQUEL [Suspect]
     Indication: SLEEP DISORDER
     Dosage: 25-100 MG
     Route: 048
     Dates: start: 20000428
  2. SEROQUEL [Suspect]
     Indication: BIPOLAR DISORDER
     Dosage: 25-100 MG
     Route: 048
     Dates: start: 20000428
  3. SEROQUEL [Suspect]
     Indication: DEPRESSION
     Dosage: 25-100 MG
     Route: 048
     Dates: start: 20000428
  4. SEROQUEL [Suspect]
     Dosage: 25MG - 100MG
     Route: 048
     Dates: start: 20050404
  5. SEROQUEL [Suspect]
     Dosage: 25MG - 100MG
     Route: 048
     Dates: start: 20050404
  6. SEROQUEL [Suspect]
     Dosage: 25MG - 100MG
     Route: 048
     Dates: start: 20050404
  7. SEROQUEL [Suspect]
     Route: 048
     Dates: start: 20040828, end: 20050201
  8. SEROQUEL [Suspect]
     Route: 048
     Dates: start: 20040828, end: 20050201
  9. SEROQUEL [Suspect]
     Route: 048
     Dates: start: 20040828, end: 20050201
  10. KLONOPIN [Concomitant]
  11. PROTONIX [Concomitant]
  12. CATAPRES [Concomitant]
  13. ZOCOR [Concomitant]
  14. CELEXA [Concomitant]
  15. LOPRESSOR [Concomitant]
  16. NOVOLIN 70/30 [Concomitant]
  17. SENNA [Concomitant]
  18. LORAZEPAM [Concomitant]
  19. HYDRALAZINE HCL [Concomitant]
  20. TORADOL [Concomitant]
  21. PRINIVIL [Concomitant]
  22. ASPIRIN [Concomitant]
  23. TRILAFON [Concomitant]
  24. TRIAVIL [Concomitant]

REACTIONS (28)
  - AGGRESSION [None]
  - CEREBROVASCULAR ACCIDENT [None]
  - CHRONIC HEPATITIS [None]
  - COLITIS [None]
  - COMA [None]
  - CONFUSIONAL STATE [None]
  - DEATH [None]
  - DEPRESSION [None]
  - DIABETES MELLITUS INADEQUATE CONTROL [None]
  - DIABETIC COMA [None]
  - DIABETIC GASTROPARESIS [None]
  - DIABETIC KETOACIDOSIS [None]
  - ENCEPHALITIS [None]
  - GASTRITIS [None]
  - HYPERGLYCAEMIA [None]
  - HYPERLIPIDAEMIA [None]
  - HYPERTENSION [None]
  - HYPONATRAEMIA [None]
  - HYPOTENSION [None]
  - HYPOVOLAEMIA [None]
  - MUSCULAR WEAKNESS [None]
  - NEUROPATHY PERIPHERAL [None]
  - PAIN IN EXTREMITY [None]
  - PANCREATITIS ACUTE [None]
  - PNEUMONIA [None]
  - RENAL COLIC [None]
  - RETINAL HAEMORRHAGE [None]
  - TOBACCO ABUSE [None]
